FAERS Safety Report 7892704-3 (Version None)
Quarter: 2011Q4

REPORT INFORMATION
  Report Type: 
  Country: None (occurrence: None)
  Receive Date: 20111102
  Receipt Date: 20111024
  Transmission Date: 20120403
  Serious: Yes (Hospitalization, Other)
  Sender: FDA-Public Use
  Company Number: E2B_00000120

PATIENT
  Sex: Female
  Weight: 3.31 kg

DRUGS (2)
  1. SERTRALINE HYDROCHLORIDE [Suspect]
     Indication: DEPRESSION
     Dosage: 100 [MG/D],TRANSPLACENTAL
     Route: 064
  2. FOLIC ACID (FOLSAURE) [Concomitant]

REACTIONS (8)
  - MATERNAL DRUGS AFFECTING FOETUS [None]
  - EAR HAEMORRHAGE [None]
  - SCLERAL HAEMORRHAGE [None]
  - HAEMATOMA [None]
  - AGITATION NEONATAL [None]
  - CYANOSIS NEONATAL [None]
  - SPINAL DISORDER [None]
  - GROSS MOTOR DELAY [None]
